FAERS Safety Report 23440981 (Version 3)
Quarter: 2024Q1

REPORT INFORMATION
  Report Type: Spontaneous
  Country: JP (occurrence: JP)
  Receive Date: 20240125
  Receipt Date: 20240216
  Transmission Date: 20240410
  Serious: Yes (Other)
  Sender: FDA-Public Use
  Company Number: JP-UCBSA-2024003353

PATIENT
  Age: 33 Year
  Sex: Female

DRUGS (5)
  1. LEVETIRACETAM [Suspect]
     Active Substance: LEVETIRACETAM
     Indication: Epilepsy
     Dosage: 1500 MILLIGRAM, 2X/DAY (BID)
     Route: 048
  2. LEVETIRACETAM [Suspect]
     Active Substance: LEVETIRACETAM
     Dosage: 1000 MILLIGRAM/ DAY
     Route: 048
  3. LEVETIRACETAM [Suspect]
     Active Substance: LEVETIRACETAM
     Dosage: 2000 MILLIGRAM/ DAY
     Route: 048
  4. VIMPAT [Suspect]
     Active Substance: LACOSAMIDE
     Indication: Epilepsy
     Dosage: UNK
     Route: 041
  5. VIMPAT [Suspect]
     Active Substance: LACOSAMIDE
     Indication: Epilepsy
     Dosage: 100 MILLIGRAM, 2X/DAY (BID)
     Route: 048

REACTIONS (1)
  - Mental impairment [Recovered/Resolved]
